FAERS Safety Report 19563185 (Version 1)
Quarter: 2021Q3

REPORT INFORMATION
  Report Type: Spontaneous
  Country: FR (occurrence: FR)
  Receive Date: 20210716
  Receipt Date: 20210716
  Transmission Date: 20211014
  Serious: Yes (Hospitalization)
  Sender: FDA-Public Use
  Company Number: FR-TEVA-2021-FR-1932188

PATIENT
  Age: 73 Year
  Sex: Female

DRUGS (10)
  1. KARDEGIC [Concomitant]
     Active Substance: ASPIRIN DL-LYSINE
     Dosage: POWDER FOR ORAL SOLUTION IN SACHET?DOSE , 1 DF ,THERAPY START DATE AND END DATE : ASKU
     Route: 048
  2. ESOMEPRAZOLE. [Suspect]
     Active Substance: ESOMEPRAZOLE MAGNESIUM
     Indication: PRODUCT USED FOR UNKNOWN INDICATION
     Dosage: 20 MG , THERAPY START DATE : ASKU
     Route: 048
  3. CORTANCYL 5 MG, COMPRIME [Suspect]
     Active Substance: PREDNISONE
     Indication: RENAL TRANSPLANT
     Dosage: 1 DF  , THERAPY START DATE : ASKU
     Route: 048
  4. NEORAL [Suspect]
     Active Substance: CYCLOSPORINE
     Indication: RENAL TRANSPLANT
     Dosage: 175 MG , THERAPY START DATE : ASKU
     Route: 048
  5. ZYLORIC 200 MG, COMPRIME [Suspect]
     Active Substance: ALLOPURINOL
     Indication: GOUT
     Dosage: 1 DF , THERAPY START DATE : ASKU
     Route: 048
  6. CARDENSIEL 3,75 MG, COMPRIME PELLICULE SECABLE [Suspect]
     Active Substance: BISOPROLOL FUMARATE
     Indication: PRODUCT USED FOR UNKNOWN INDICATION
     Dosage: 1 DF , THERAPY START DATE : ASKU
     Route: 048
  7. ELISOR 20 MG, COMPRIME SECABLE [Suspect]
     Active Substance: PRAVASTATIN SODIUM
     Indication: DYSLIPIDAEMIA
     Dosage: 1 DF , THERAPY START DATE : ASKU
     Route: 048
  8. NEORECORMON 4000 UI, SOLUTION INJECTABLE EN SERINGUE PREREMPLIE [Suspect]
     Active Substance: ERYTHROPOIETIN
     Indication: ANAEMIA
     Dosage: 4000 IU
     Route: 058
     Dates: start: 202104
  9. RAMIPRIL. [Suspect]
     Active Substance: RAMIPRIL
     Indication: HYPERTENSION
     Dosage: 5 MG , THERAPY START DATE : ASKU
     Route: 048
  10. LASILIX FAIBLE 20 MG, COMPRIME [Suspect]
     Active Substance: FUROSEMIDE
     Indication: HYPERTENSION
     Dosage: 1 DF , THERAPY START DATE : ASKU
     Route: 048

REACTIONS (1)
  - Retinal artery occlusion [Not Recovered/Not Resolved]

NARRATIVE: CASE EVENT DATE: 20210611
